FAERS Safety Report 4511926-2 (Version None)
Quarter: 2004Q4

REPORT INFORMATION
  Report Type: 
  Country: None (occurrence: None)
  Receive Date: 20041123
  Receipt Date: 20041109
  Transmission Date: 20050328
  Serious: Yes (Hospitalization)
  Sender: FDA-Public Use
  Company Number: 2004-BP-11596RO

PATIENT
  Age: 64 Year
  Sex: Female

DRUGS (7)
  1. PREDNISONE [Suspect]
     Indication: MYASTHENIA GRAVIS
     Dosage: 20 MG/DAY (20 MG), PO
     Route: 048
     Dates: start: 20021001
  2. AZATHIOPRINE [Suspect]
     Indication: MYASTHENIA GRAVIS
  3. METOPROLOL TARTRATE [Concomitant]
  4. PYRIDOSTIGMINE (PYRIDOSTIGMINE) [Concomitant]
  5. BENAZEPRIL HCL [Concomitant]
  6. HYDROXYZINE [Concomitant]
  7. FUROSEMIDE [Concomitant]

REACTIONS (13)
  - BACTERIAL INFECTION [None]
  - CARDIOMEGALY [None]
  - CELLULITIS [None]
  - CRYPTOCOCCOSIS [None]
  - DIFFICULTY IN WALKING [None]
  - ERYTHEMA NODOSUM [None]
  - PAIN [None]
  - PANNICULITIS LOBULAR [None]
  - PITTING OEDEMA [None]
  - PLATELET COUNT INCREASED [None]
  - SKIN DISORDER [None]
  - SKIN NODULE [None]
  - SUPERINFECTION [None]
